FAERS Safety Report 19809828 (Version 1)
Quarter: 2021Q3

REPORT INFORMATION
  Report Type: Spontaneous
  Country: US (occurrence: US)
  Receive Date: 20210908
  Receipt Date: 20210908
  Transmission Date: 20211014
  Serious: Yes (Hospitalization)
  Sender: FDA-Public Use
  Company Number: US-PRINSTON PHARMACEUTICAL INC.-2021PRN00312

PATIENT
  Sex: Female

DRUGS (4)
  1. LISINOPRIL. [Suspect]
     Active Substance: LISINOPRIL
     Dosage: 10 MG
  2. LISINOPRIL. [Suspect]
     Active Substance: LISINOPRIL
     Dosage: 20 MG
     Dates: end: 202105
  3. LISINOPRIL. [Suspect]
     Active Substance: LISINOPRIL
     Indication: BLOOD PRESSURE ABNORMAL
     Dosage: 5 MG
  4. LISINOPRIL. [Suspect]
     Active Substance: LISINOPRIL
     Dosage: 30 MG
     Dates: start: 202105

REACTIONS (9)
  - Fatigue [Not Recovered/Not Resolved]
  - Decreased appetite [Not Recovered/Not Resolved]
  - Swelling [Not Recovered/Not Resolved]
  - Drug ineffective [Recovered/Resolved]
  - Headache [Not Recovered/Not Resolved]
  - Diverticulitis [Not Recovered/Not Resolved]
  - Asthenia [Not Recovered/Not Resolved]
  - Unevaluable event [Not Recovered/Not Resolved]
  - Weight decreased [Not Recovered/Not Resolved]

NARRATIVE: CASE EVENT DATE: 2021
